FAERS Safety Report 9072855 (Version 1)
Quarter: 2013Q1

REPORT INFORMATION
  Report Type: Report from Study
  Country: US (occurrence: US)
  Receive Date: 20130128
  Receipt Date: 20130128
  Transmission Date: 20140127
  Serious: No
  Sender: FDA-Public Use
  Company Number: US-ABBOTT-12P-163-0917543-00

PATIENT
  Sex: Female
  Weight: 79.45 kg

DRUGS (9)
  1. HUMIRA 40 MG/0.8 ML PEN [Suspect]
     Indication: ANKYLOSING SPONDYLITIS
     Route: 058
     Dates: start: 20120318
  2. METHOTREXATE [Concomitant]
     Indication: PRODUCT USED FOR UNKNOWN INDICATION
  3. LISINOPRIL [Concomitant]
     Indication: HYPERTENSION
  4. GABAPENTIN [Concomitant]
     Indication: NEURALGIA
  5. TORADOL [Concomitant]
     Indication: PAIN
  6. TRAMADOL [Concomitant]
     Indication: PAIN
  7. WELLBUTRIN [Concomitant]
     Indication: DEPRESSION
  8. ZOLOFT [Concomitant]
     Indication: DEPRESSION
  9. LORAZEPAM [Concomitant]
     Indication: SLEEP DISORDER THERAPY

REACTIONS (2)
  - Fatigue [Not Recovered/Not Resolved]
  - Asthenia [Not Recovered/Not Resolved]
